FAERS Safety Report 5328991-5 (Version None)
Quarter: 2007Q2

REPORT INFORMATION
  Report Type: 
  Country: None (occurrence: None)
  Receive Date: 20070518
  Receipt Date: 20070516
  Transmission Date: 20071010
  Serious: Yes (Hospitalization)
  Sender: FDA-Public Use
  Company Number: GB-PURDUE-GBR_2007_0002995

PATIENT
  Age: 62 Year
  Sex: Male

DRUGS (12)
  1. MORPHINE SULFATE [Suspect]
     Indication: PAIN
  2. NEOTIGASON [Suspect]
     Indication: PSORIASIS
     Dosage: 10 MG, DAILY
     Route: 048
     Dates: start: 20050313
  3. NEOTIGASON [Suspect]
     Dosage: 50 MG, DAILY
     Route: 048
     Dates: start: 20050313, end: 20060911
  4. NEOTIGASON [Suspect]
     Dosage: 35 MG, DAILY
     Route: 048
  5. NEOTIGASON [Suspect]
     Dosage: 25 MG, DAILY
     Route: 048
  6. BECLOMETHASONE DIPROPIONATE [Concomitant]
     Indication: DRUG USE FOR UNKNOWN INDICATION
     Dosage: 2 DF, DAILY
     Route: 055
  7. CAPASAL [Concomitant]
     Indication: DRUG USE FOR UNKNOWN INDICATION
     Route: 065
  8. COAL TAR [Concomitant]
     Indication: DRUG USE FOR UNKNOWN INDICATION
     Dosage: UNK, BID
     Route: 065
     Dates: start: 20050607
  9. MIRTAZAPINE [Concomitant]
     Indication: DRUG USE FOR UNKNOWN INDICATION
     Dosage: 1 DF, DAILY
     Route: 065
     Dates: start: 20060407
  10. OLANZAPINE [Concomitant]
     Indication: DRUG USE FOR UNKNOWN INDICATION
     Dosage: 1 DF, DAILY
     Route: 065
     Dates: start: 20051111
  11. PARAFFIN, LIQUID [Concomitant]
     Indication: DRUG USE FOR UNKNOWN INDICATION
     Dosage: UNK, DAILY
     Route: 061
  12. SALBUTAMOL [Concomitant]
     Indication: DRUG USE FOR UNKNOWN INDICATION
     Dosage: 1 DF, PRN
     Route: 065

REACTIONS (7)
  - CONSTIPATION [None]
  - DEHYDRATION [None]
  - DIARRHOEA [None]
  - IMPAIRED HEALING [None]
  - INSOMNIA [None]
  - ORAL INTAKE REDUCED [None]
  - PAIN IN EXTREMITY [None]
